FAERS Safety Report 7808700-8 (Version None)
Quarter: 2011Q4

REPORT INFORMATION
  Report Type: 
  Country: None (occurrence: None)
  Receive Date: 20111012
  Receipt Date: 20111010
  Transmission Date: 20120403
  Serious: Yes (Other)
  Sender: FDA-Public Use
  Company Number: DE-AMGEN-DEUCT2011045935

PATIENT
  Age: 74 Year
  Sex: Male

DRUGS (9)
  1. RINGER [Concomitant]
     Dosage: 2 UNK, UNK
  2. CISPLATIN [Concomitant]
     Dosage: 60 MG/M2, UNK
     Dates: start: 20110701
  3. NOVALGIN [Concomitant]
     Dosage: 1 G, UNK
     Dates: start: 20110817, end: 20110821
  4. VITAMIN B-12 [Concomitant]
  5. PANITUMUMAB [Suspect]
     Indication: GASTROOESOPHAGEAL CANCER
     Dosage: 9 MG/M2, UNK
     Dates: start: 20110630
  6. EPIRUBICIN [Concomitant]
     Dosage: 50 MG/M2, UNK
     Dates: start: 20110701
  7. EMBOLEX [Concomitant]
     Dosage: UNK UNK, QH
     Dates: start: 20110816, end: 20110911
  8. METOCLOPRAMIDE HYDROCHLORIDE [Concomitant]
     Dosage: UNK
     Dates: start: 20110817, end: 20110826
  9. CAPECITABINE [Concomitant]
     Dosage: 625 MG/M2, UNK
     Dates: start: 20110701

REACTIONS (1)
  - IMPAIRED HEALING [None]
